FAERS Safety Report 26190152 (Version 1)
Quarter: 2025Q4

REPORT INFORMATION
  Report Type: Spontaneous
  Country: US (occurrence: US)
  Receive Date: 20251223
  Receipt Date: 20251223
  Transmission Date: 20260118
  Serious: Yes (Life-Threatening, Hospitalization)
  Sender: AMGEN
  Company Number: US-AMGEN-USASP2025250066

PATIENT
  Age: 48 Year
  Sex: Female

DRUGS (3)
  1. RITUXIMAB [Suspect]
     Active Substance: RITUXIMAB
     Indication: Interstitial lung disease
     Dosage: UNK
     Route: 065
  2. Immunoglobulin [Concomitant]
     Indication: Interstitial lung disease
     Route: 040
  3. TACROLIMUS [Concomitant]
     Active Substance: TACROLIMUS
     Indication: Interstitial lung disease

REACTIONS (3)
  - Respiratory failure [Unknown]
  - Pneumomediastinum [Unknown]
  - Off label use [Unknown]
